FAERS Safety Report 18879878 (Version 3)
Quarter: 2021Q2

REPORT INFORMATION
  Report Type: Spontaneous
  Country: US (occurrence: US)
  Receive Date: 20210211
  Receipt Date: 20210413
  Transmission Date: 20210717
  Serious: No
  Sender: FDA-Public Use
  Company Number: US-BIOGEN-2020BI00938722

PATIENT
  Sex: Male

DRUGS (1)
  1. TYSABRI [Suspect]
     Active Substance: NATALIZUMAB
     Indication: MULTIPLE SCLEROSIS
     Route: 065
     Dates: start: 20110505

REACTIONS (7)
  - Neuropathy peripheral [Unknown]
  - Multiple sclerosis [Recovered/Resolved]
  - Cerebral disorder [Recovered/Resolved]
  - Muscle spasms [Unknown]
  - Insomnia [Not Recovered/Not Resolved]
  - Hyperaesthesia [Unknown]
  - Cutaneous symptom [Not Recovered/Not Resolved]
